FAERS Safety Report 8293052-2 (Version None)
Quarter: 2012Q2

REPORT INFORMATION
  Report Type: 
  Country: None (occurrence: None)
  Receive Date: 20120417
  Receipt Date: 20120214
  Transmission Date: 20120825
  Serious: No
  Sender: FDA-Public Use
  Company Number: US-ASTRAZENECA-2009UW05216

PATIENT
  Age: 63 Year
  Sex: Male
  Weight: 113.4 kg

DRUGS (5)
  1. SEROQUEL [Suspect]
     Route: 048
  2. KLONOPIN [Concomitant]
  3. NEXIUM [Suspect]
     Route: 048
  4. ZOLOFT [Concomitant]
  5. PRILOSEC [Suspect]
     Indication: BARRETT'S OESOPHAGUS
     Route: 048
     Dates: start: 20090210

REACTIONS (7)
  - NAUSEA [None]
  - SLEEP DISORDER DUE TO A GENERAL MEDICAL CONDITION [None]
  - GASTROOESOPHAGEAL REFLUX DISEASE [None]
  - DYSPHONIA [None]
  - VOMITING [None]
  - APHONIA [None]
  - DYSPEPSIA [None]
